FAERS Safety Report 22211274 (Version 1)
Quarter: 2023Q2

REPORT INFORMATION
  Report Type: Spontaneous
  Country: US (occurrence: US)
  Receive Date: 20230414
  Receipt Date: 20230414
  Transmission Date: 20230722
  Serious: No
  Sender: FDA-Public Use
  Company Number: US-GSKCCFUS-Case-01674678_AE-94469

PATIENT
  Sex: Female

DRUGS (1)
  1. ADVAIR DISKUS [Suspect]
     Active Substance: FLUTICASONE PROPIONATE\SALMETEROL XINAFOATE
     Indication: Product used for unknown indication
     Dosage: UNK, 500/50MCG, TAKING ADVAIR DISKUS 500 FOR OVER 20 YEARS

REACTIONS (4)
  - Wheezing [Unknown]
  - General physical health deterioration [Unknown]
  - Intentional underdose [Unknown]
  - Intentional product misuse [Unknown]
